FAERS Safety Report 17997330 (Version 1)
Quarter: 2020Q3

REPORT INFORMATION
  Report Type: Spontaneous
  Country: US (occurrence: US)
  Receive Date: 20200708
  Receipt Date: 20200708
  Transmission Date: 20201103
  Serious: No
  Sender: FDA-Public Use
  Company Number: US-FRESENIUS KABI-FK202006792

PATIENT
  Age: 13 Year
  Sex: Male
  Weight: 65.8 kg

DRUGS (6)
  1. METHYLPREDNISOLONE SODIUM SUCCINATE INJECTION, USP [Suspect]
     Active Substance: METHYLPREDNISOLONE SODIUM SUCCINATE
     Indication: PROPHYLAXIS
     Dates: start: 20200701, end: 20200701
  2. IBUPROFEN. [Concomitant]
     Active Substance: IBUPROFEN
     Indication: PREMEDICATION
     Route: 048
     Dates: start: 20200606, end: 20200606
  3. IBUPROFEN. [Concomitant]
     Active Substance: IBUPROFEN
     Route: 048
     Dates: start: 20200701, end: 20200701
  4. ACRIVASTINE [Concomitant]
     Active Substance: ACRIVASTINE
     Route: 048
     Dates: start: 20200701, end: 20200701
  5. METHYLPREDNISOLONE SODIUM SUCCINATE INJECTION, USP [Suspect]
     Active Substance: METHYLPREDNISOLONE SODIUM SUCCINATE
     Indication: PREMEDICATION
     Dates: start: 20200606, end: 20200606
  6. ACRIVASTINE [Concomitant]
     Active Substance: ACRIVASTINE
     Indication: PREMEDICATION
     Route: 048
     Dates: start: 20200606, end: 20200606

REACTIONS (2)
  - Hypersensitivity [Recovering/Resolving]
  - Hypersensitivity [Recovered/Resolved]

NARRATIVE: CASE EVENT DATE: 20200606
